FAERS Safety Report 6086656-9 (Version None)
Quarter: 2009Q1

REPORT INFORMATION
  Report Type: 
  Country: None (occurrence: None)
  Receive Date: 20090223
  Receipt Date: 20090212
  Transmission Date: 20090719
  Serious: Yes (Other)
  Sender: FDA-Public Use
  Company Number: DE-AMGEN-US330872

PATIENT
  Age: 57 Year
  Sex: Female

DRUGS (8)
  1. ENBREL [Suspect]
     Indication: RHEUMATOID ARTHRITIS
     Route: 058
     Dates: start: 20070301, end: 20080301
  2. VALORON N [Concomitant]
     Route: 065
  3. CELEBREX [Concomitant]
     Indication: RHEUMATOID ARTHRITIS
     Dosage: UNKNOWN
     Route: 048
     Dates: start: 20010101
  4. METHOTREXATE [Concomitant]
     Route: 065
     Dates: start: 20031216, end: 20050412
  5. METHOTREXATE [Concomitant]
     Dates: start: 20050412, end: 20060302
  6. METHOTREXATE [Concomitant]
     Dates: start: 20060302, end: 20060928
  7. METHOTREXATE [Concomitant]
     Dates: start: 20060928
  8. PREDNISOLONE [Concomitant]
     Indication: RHEUMATOID ARTHRITIS
     Route: 048
     Dates: start: 20010101

REACTIONS (6)
  - ANGINA PECTORIS [None]
  - DRUG INTOLERANCE [None]
  - HEADACHE [None]
  - NAUSEA [None]
  - VERTIGO [None]
  - VOMITING [None]
